FAERS Safety Report 8297026-7 (Version None)
Quarter: 2012Q2

REPORT INFORMATION
  Report Type: 
  Country: None (occurrence: None)
  Receive Date: 20120413
  Receipt Date: 20120409
  Transmission Date: 20120825
  Serious: Yes (Hospitalization)
  Sender: FDA-Public Use
  Company Number: IMP_05840_2012

PATIENT
  Age: 18 Year
  Sex: Female

DRUGS (2)
  1. METFORMIN HCL [Suspect]
     Indication: PRODUCT USED FOR UNKNOWN INDICATION
     Dosage: (17.5 G 1X, NOT THE PRESCRIBED AMOUNT, 35 TABLETS ORAL)
     Route: 048
  2. OIL (KEROSENE OIL) (NOT SPECIFIED) [Suspect]
     Indication: SUICIDE ATTEMPT
     Dosage: (200 ML 1X ORAL)
     Route: 048

REACTIONS (14)
  - HAEMODIALYSIS [None]
  - BLOOD PRESSURE DECREASED [None]
  - DRUG INTERACTION [None]
  - OVERDOSE [None]
  - ABDOMINAL TENDERNESS [None]
  - BLOOD GLUCOSE DECREASED [None]
  - METABOLIC ACIDOSIS [None]
  - GRAND MAL CONVULSION [None]
  - TOXICITY TO VARIOUS AGENTS [None]
  - LACTIC ACIDOSIS [None]
  - DYSPNOEA [None]
  - RENAL FAILURE ACUTE [None]
  - KUSSMAUL RESPIRATION [None]
  - VOMITING [None]
